FAERS Safety Report 17895004 (Version 2)
Quarter: 2020Q2

REPORT INFORMATION
  Report Type: Spontaneous
  Country: GB (occurrence: GB)
  Receive Date: 20200615
  Receipt Date: 20200615
  Transmission Date: 20200714
  Serious: Yes (Hospitalization, Other)
  Sender: FDA-Public Use
  Company Number: GB-AMGEN-GBRSP2020091332

PATIENT
  Age: 40 Year
  Sex: Male

DRUGS (1)
  1. PROCORALAN [Suspect]
     Active Substance: IVABRADINE
     Indication: PRODUCT USED FOR UNKNOWN INDICATION
     Dosage: 5 MG, BID
     Route: 048

REACTIONS (4)
  - Product dispensing error [Recovered/Resolved]
  - Syncope [Unknown]
  - Malaise [Unknown]
  - Accidental overdose [Unknown]

NARRATIVE: CASE EVENT DATE: 2020
